FAERS Safety Report 7791395-X (Version None)
Quarter: 2011Q4

REPORT INFORMATION
  Report Type: 
  Country: None (occurrence: None)
  Receive Date: 20111003
  Receipt Date: 20110921
  Transmission Date: 20120403
  Serious: Yes (Other)
  Sender: FDA-Public Use
  Company Number: US-JNJFOC-20110909965

PATIENT
  Sex: Female

DRUGS (2)
  1. REMICADE [Suspect]
     Route: 065
     Dates: start: 20090901
  2. REMICADE [Suspect]
     Indication: CROHN'S DISEASE
     Route: 065
     Dates: start: 20080201, end: 20090701

REACTIONS (2)
  - BASAL CELL CARCINOMA [None]
  - SQUAMOUS CELL CARCINOMA [None]
